FAERS Safety Report 23803595 (Version 1)
Quarter: 2024Q2

REPORT INFORMATION
  Report Type: Other
  Country: US (occurrence: None)
  Receive Date: 20240501
  Receipt Date: 20240501
  Transmission Date: 20240716
  Serious: Yes (Other)
  Sender: FDA-Public Use
  Company Number: US-ROCHE-3550397

PATIENT
  Age: 78 Year
  Sex: Female

DRUGS (2)
  1. ACTEMRA [Suspect]
     Active Substance: TOCILIZUMAB
     Indication: Giant cell arteritis
     Dosage: INJECT 162MG SUBCUTANEOUSLY EVERY 1 WEEK(S)
     Route: 058
  2. ACTEMRA [Suspect]
     Active Substance: TOCILIZUMAB

REACTIONS (6)
  - Deafness [Unknown]
  - Blindness [Unknown]
  - Injection site erythema [Unknown]
  - Injection site swelling [Unknown]
  - Pruritus [Unknown]
  - Pain [Unknown]
